FAERS Safety Report 8879529 (Version 2)
Quarter: 2012Q4

REPORT INFORMATION
  Report Type: 
  Country: IT (occurrence: IT)
  Receive Date: 20121031
  Receipt Date: 20121130
  Transmission Date: 20130627
  Serious: Yes (Hospitalization)
  Sender: FDA-Public Use
  Company Number: IT-ABBOTT-12P-083-1001620-00

PATIENT
  Age: 41 Year
  Sex: Female

DRUGS (4)
  1. DEPAKIN CHRONO [Suspect]
     Indication: INTENTIONAL OVERDOSE
     Route: 048
     Dates: start: 20120824, end: 20120824
  2. CIPRALEX [Suspect]
     Indication: INTENTIONAL OVERDOSE
     Dosage: 40 tablets of 10mg
     Route: 048
     Dates: start: 20120824, end: 20120824
  3. LARGACTIL [Suspect]
     Indication: INTENTIONAL OVERDOSE
     Dosage: 19tablets of 100mg
     Route: 048
     Dates: start: 20120824, end: 20120824
  4. LENDORMIN [Suspect]
     Indication: INTENTIONAL OVERDOSE
     Dosage: 19tablets of 0.25mg
     Route: 048
     Dates: start: 20120824, end: 20120824

REACTIONS (2)
  - Sopor [Recovered/Resolved]
  - Intentional overdose [Unknown]
